FAERS Safety Report 5391801-4 (Version None)
Quarter: 2007Q3

REPORT INFORMATION
  Report Type: 
  Country: None (occurrence: None)
  Receive Date: 20070719
  Receipt Date: 20070710
  Transmission Date: 20080115
  Serious: Yes (Hospitalization, Other)
  Sender: FDA-Public Use
  Company Number: US-ABBOTT-07P-163-0374058-00

PATIENT
  Age: 56 Year
  Sex: Male

DRUGS (4)
  1. NORVIR [Suspect]
     Indication: SYSTEMIC ANTIVIRAL TREATMENT
     Dosage: NOT REPORTED
  2. STAVUDINE [Suspect]
     Indication: SYSTEMIC ANTIVIRAL TREATMENT
     Dosage: NOT REPORTED
  3. ABACAVIR [Suspect]
     Indication: SYSTEMIC ANTIVIRAL TREATMENT
     Dosage: NOT REPORTED
  4. SAQUINAVIR [Suspect]
     Indication: SYSTEMIC ANTIVIRAL TREATMENT
     Dosage: NOT REPORTED

REACTIONS (2)
  - CHOROIDITIS [None]
  - MENINGITIS CRYPTOCOCCAL [None]
